FAERS Safety Report 7338041-7 (Version None)
Quarter: 2011Q1

REPORT INFORMATION
  Report Type: 
  Country: None (occurrence: None)
  Receive Date: 20110308
  Receipt Date: 20110222
  Transmission Date: 20110831
  Serious: Yes (Other)
  Sender: FDA-Public Use
  Company Number: PHHY2011US16141

PATIENT
  Sex: Female

DRUGS (1)
  1. RECLAST [Suspect]
     Indication: OSTEOPOROSIS
     Dosage: 5 MG/ 100 ML, YEARLY
     Dates: start: 20110210

REACTIONS (5)
  - BACK PAIN [None]
  - RASH MACULO-PAPULAR [None]
  - DYSPNOEA [None]
  - DRUG ERUPTION [None]
  - CHEST PAIN [None]
